FAERS Safety Report 16348688 (Version 2)
Quarter: 2019Q4

REPORT INFORMATION
  Report Type: Spontaneous
  Country: US (occurrence: US)
  Receive Date: 20190523
  Receipt Date: 20191119
  Transmission Date: 20200122
  Serious: No
  Sender: FDA-Public Use
  Company Number: US-TEVA-2019-US-1051750

PATIENT
  Sex: Male

DRUGS (1)
  1. TEVA OLMESARTAN W/AMLODIPINE W/HYDROCHLOROTHIAZIDE [Suspect]
     Active Substance: AMLODIPINE\HYDROCHLOROTHIAZIDE\OLMESARTAN
     Indication: HYPERTENSION
     Dosage: OLMESARTAN MEDOXOMIL 40 MG/ AMLODIPINE BESYLATE 10 MG/ HYDROCHLOROTHIAZIDE, 12.5 MG,

REACTIONS (2)
  - Drug ineffective [Unknown]
  - Product quality issue [Unknown]

NARRATIVE: CASE EVENT DATE: 2019
